FAERS Safety Report 23647246 (Version 1)
Quarter: 2024Q1

REPORT INFORMATION
  Report Type: Spontaneous
  Country: NL (occurrence: NL)
  Receive Date: 20240319
  Receipt Date: 20240319
  Transmission Date: 20240410
  Serious: Yes (Other)
  Sender: FDA-Public Use
  Company Number: NL-LRB-00928053

PATIENT
  Age: 68 Year
  Sex: Male
  Weight: 95 kg

DRUGS (9)
  1. ROSUVASTATIN [Suspect]
     Active Substance: ROSUVASTATIN
     Indication: Hypercholesterolaemia
     Dosage: 10 MILLIGRAM, DAILY, 1 DD 1 TABLET
     Route: 065
     Dates: start: 20220531, end: 20230801
  2. METRONIDAZOLE [Concomitant]
     Active Substance: METRONIDAZOLE
     Indication: Product used for unknown indication
     Dosage: 1 DOSAGE FORM, APPLY TO SKIN AS NEEDED
     Route: 065
  3. CHOLECALCIFEROL [Concomitant]
     Active Substance: CHOLECALCIFEROL
     Indication: Product used for unknown indication
     Dosage: 5600 INTERNATIONAL UNIT, 1/WEEK, CAPSULE TAKE 1 CAPSULE BY MOUTH ONCE A WEEK ON MONDAY
     Route: 065
  4. OMEPRAZOLE [Concomitant]
     Active Substance: OMEPRAZOLE
     Indication: Product used for unknown indication
     Dosage: 40 MILLIGRAM, DAILY, TAKE 1 CAPSULE BY MOUTH DAILY
     Route: 065
  5. CITALOPRAM [Concomitant]
     Active Substance: CITALOPRAM HYDROBROMIDE
     Indication: Product used for unknown indication
     Dosage: 40 MILLIGRAM, DAILY, TAKE 40 MG BY MOUTH EVERY MORNING WITH BREAKFAST.
     Route: 065
  6. INSULIN NOS [Concomitant]
     Active Substance: INSULIN NOS
     Indication: Product used for unknown indication
     Dosage: 72 INTERNATIONAL UNIT, DAILY, IN THE EVENING 8 P.M
     Route: 065
  7. INSULIN NOS [Concomitant]
     Active Substance: INSULIN NOS
     Indication: Product used for unknown indication
     Dosage: 16 INTERNATIONAL UNIT, TID, WITH MEALS
     Route: 065
  8. ASPIRIN [Concomitant]
     Active Substance: ASPIRIN
     Indication: Product used for unknown indication
     Dosage: 80 MILLIGRAM, DAILY, TAKE 80 MG BY MOUTH EVERY MORNING WITH BREAKFAST
     Route: 065
  9. NITROGLYCERIN [Concomitant]
     Active Substance: NITROGLYCERIN
     Indication: Product used for unknown indication
     Dosage: 1 DOSAGE FORM, 1 SPRAY AS NEEDED FOR CHEST PAIN.
     Route: 065

REACTIONS (1)
  - Syncope [Recovered/Resolved]
